FAERS Safety Report 5924245-4 (Version None)
Quarter: 2008Q4

REPORT INFORMATION
  Report Type: 
  Country: None (occurrence: None)
  Receive Date: 20081020
  Receipt Date: 20081008
  Transmission Date: 20090506
  Serious: Yes (Other)
  Sender: FDA-Public Use
  Company Number: JP-PFIZER INC-2008076519

PATIENT
  Age: 72 Year
  Sex: Female

DRUGS (3)
  1. ZOLOFT [Suspect]
     Indication: DEPRESSION
     Dosage: DAILY DOSE:25MG
     Route: 048
  2. MYSLEE [Concomitant]
     Indication: INSOMNIA
     Route: 048
  3. SEROQUEL [Concomitant]
     Route: 048

REACTIONS (1)
  - DELIRIUM [None]
